FAERS Safety Report 13508315 (Version 1)
Quarter: 2017Q2

REPORT INFORMATION
  Report Type: Spontaneous
  Country: US (occurrence: US)
  Receive Date: 20170503
  Receipt Date: 20170503
  Transmission Date: 20170830
  Serious: No
  Sender: FDA-Public Use
  Company Number: US-ASTRAZENECA-2016SE88563

PATIENT
  Age: 20722 Day
  Sex: Female
  Weight: 83.5 kg

DRUGS (1)
  1. BYDUREON [Suspect]
     Active Substance: EXENATIDE
     Indication: DIABETES MELLITUS
     Route: 065
     Dates: start: 20160705

REACTIONS (1)
  - Injection site mass [Unknown]

NARRATIVE: CASE EVENT DATE: 20160815
